FAERS Safety Report 4932678-8 (Version None)
Quarter: 2006Q1

REPORT INFORMATION
  Report Type: 
  Country: None (occurrence: None)
  Receive Date: 20060301
  Receipt Date: 20060216
  Transmission Date: 20060701
  Serious: Yes (Hospitalization)
  Sender: FDA-Public Use
  Company Number: 2006025359

PATIENT
  Age: 65 Year
  Sex: Male
  Weight: 78 kg

DRUGS (13)
  1. SUTENT [Suspect]
     Indication: RENAL CELL CARCINOMA STAGE UNSPECIFIED
     Dosage: 37.5 MG (37.5 MG,28 DAYS / 42 DAYS INTERVAL: DAILY), ORAL
     Route: 048
  2. AMOXICILLIN TRIHYDRATE [Concomitant]
  3. CETORNAN (ORNITHINE OXOGLURATE) [Concomitant]
  4. OMEPRAZOLE [Concomitant]
  5. CACIT (CALCIUM CARBONATE, CITRIC ACID) [Concomitant]
  6. ZOLPIDEM TARTRATE [Concomitant]
  7. PREDNISOLONE [Concomitant]
  8. XANAX [Concomitant]
  9. FERROUS SULFATE TAB [Concomitant]
  10. VITABACT (PICLOXYDINE DIHYDROCHLORIDE) [Concomitant]
  11. FLUCONAZOLE [Concomitant]
  12. MITOSYL (COD-LIVER OIL, ZINC OXIDE) [Concomitant]
  13. VASELINE (PARAFFIN SOFT) [Concomitant]

REACTIONS (5)
  - ABDOMINAL PAIN [None]
  - ANOREXIA [None]
  - CONJUNCTIVITIS [None]
  - DRY SKIN [None]
  - FUNGAL INFECTION [None]
